FAERS Safety Report 6697008-2 (Version None)
Quarter: 2010Q2

REPORT INFORMATION
  Report Type: 
  Country: None (occurrence: None)
  Receive Date: 20100426
  Receipt Date: 20100421
  Transmission Date: 20101027
  Serious: Yes (Other)
  Sender: FDA-Public Use
  Company Number: US-ALLERGAN-1005237US

PATIENT
  Sex: Female

DRUGS (5)
  1. RESTASIS [Suspect]
     Indication: DRY EYE
     Dosage: 1 GTT, BID
     Route: 047
  2. OPTIVE [Concomitant]
  3. SYSTANE [Concomitant]
  4. REFRESH TEARS [Concomitant]
  5. REMICADE [Concomitant]
     Indication: SJOGREN'S SYNDROME
     Dosage: UNK

REACTIONS (2)
  - EYE DISCHARGE [None]
  - EYE PAIN [None]
